FAERS Safety Report 7335138-2 (Version None)
Quarter: 2011Q1

REPORT INFORMATION
  Report Type: 
  Country: None (occurrence: None)
  Receive Date: 20110307
  Receipt Date: 20110228
  Transmission Date: 20110831
  Serious: Yes (Hospitalization)
  Sender: FDA-Public Use
  Company Number: US-AMGEN-USASP2011011297

PATIENT
  Age: 63 Year
  Sex: Female

DRUGS (3)
  1. ENBREL [Suspect]
     Indication: RHEUMATOID ARTHRITIS
     Dosage: 50 MG, QWK
     Dates: start: 20100901, end: 20110210
  2. ENBREL [Suspect]
     Indication: FIBROMYALGIA
  3. ENBREL [Suspect]
     Indication: DIABETES MELLITUS

REACTIONS (7)
  - ABASIA [None]
  - HEPATIC ENZYME ABNORMAL [None]
  - CARDIAC ENZYMES INCREASED [None]
  - CHEST PAIN [None]
  - RHEUMATOID ARTHRITIS [None]
  - OEDEMA PERIPHERAL [None]
  - PAIN IN EXTREMITY [None]
